FAERS Safety Report 5215979-8 (Version None)
Quarter: 2007Q1

REPORT INFORMATION
  Report Type: 
  Country: None (occurrence: None)
  Receive Date: 20070123
  Receipt Date: 20070111
  Transmission Date: 20070707
  Serious: Yes (Hospitalization)
  Sender: FDA-Public Use
  Company Number: GB-SANOFI-SYNTHELABO-F01200700036

PATIENT
  Sex: Male
  Weight: 58 kg

DRUGS (11)
  1. DOMPERIDONE [Concomitant]
  2. ORAMORPH SR [Concomitant]
     Route: 048
  3. QUININE SULFATE [Concomitant]
     Route: 048
     Dates: end: 20061004
  4. BENDROFLUAZIDE [Concomitant]
     Route: 048
     Dates: end: 20061004
  5. LANSOPRAZOLE [Concomitant]
     Route: 048
     Dates: end: 20061129
  6. CO-CODAMOL [Concomitant]
     Route: 048
     Dates: end: 20061129
  7. FLUOROURACIL [Suspect]
     Dosage: 400 MG/M2 (650 MG) BOLUS FOLLOWED BY A 46 HOUR INFUSION OF 2400 MG/M2 (3950 MG)
     Route: 041
     Dates: start: 20060920, end: 20060921
  8. FOLINIC ACID [Suspect]
     Route: 041
  9. OXALIPLATIN [Suspect]
     Indication: COLORECTAL CANCER METASTATIC
     Route: 041
     Dates: start: 20060920, end: 20060920
  10. COMBIVENT [Concomitant]
     Dosage: 6 PUFFS
     Route: 055
  11. MULTI-VITAMIN [Concomitant]
     Route: 048

REACTIONS (5)
  - ASTHENIA [None]
  - CEREBROVASCULAR ACCIDENT [None]
  - DYSPNOEA [None]
  - GENERAL PHYSICAL HEALTH DETERIORATION [None]
  - METASTASES TO CENTRAL NERVOUS SYSTEM [None]
